FAERS Safety Report 4831849-9 (Version None)
Quarter: 2005Q4

REPORT INFORMATION
  Report Type: 
  Country: None (occurrence: None)
  Receive Date: 20051118
  Receipt Date: 20050826
  Transmission Date: 20060501
  Serious: Yes (Other)
  Sender: FDA-Public Use
  Company Number: PHFR2005GB02892

PATIENT
  Age: 25 Year
  Sex: Male

DRUGS (2)
  1. DESFERAL [Suspect]
     Indication: THALASSAEMIA BETA
     Dosage: 2.5G/DAY
     Route: 048
     Dates: start: 19840101
  2. FERRIPROX [Suspect]
     Route: 065

REACTIONS (4)
  - BLOOD IRON INCREASED [None]
  - EJECTION FRACTION DECREASED [None]
  - NEUTROPENIA [None]
  - PALPITATIONS [None]
